FAERS Safety Report 4366347-2 (Version None)
Quarter: 2004Q2

REPORT INFORMATION
  Report Type: 
  Country: None (occurrence: None)
  Receive Date: 20040527
  Receipt Date: 20031024
  Transmission Date: 20050107
  Serious: No
  Sender: FDA-Public Use
  Company Number: US-GLAXOSMITHKLINE-A0431559A

PATIENT
  Sex: Male

DRUGS (4)
  1. VENTOLIN [Suspect]
     Indication: ASTHMA
     Route: 055
  2. ADVAIR DISKUS 100/50 [Concomitant]
  3. ATROVENT [Concomitant]
  4. SINGULAIR [Concomitant]

REACTIONS (2)
  - AIRWAY COMPLICATION OF ANAESTHESIA [None]
  - BURN OF INTERNAL ORGANS [None]
